FAERS Safety Report 8541404-5 (Version None)
Quarter: 2012Q3

REPORT INFORMATION
  Report Type: 
  Country: None (occurrence: None)
  Receive Date: 20120726
  Receipt Date: 20120724
  Transmission Date: 20120928
  Serious: Yes (Life-Threatening, Other)
  Sender: FDA-Public Use
  Company Number: TW-ROXANE LABORATORIES, INC.-2012-RO-01594RO

PATIENT
  Age: 31 Year
  Sex: Female

DRUGS (3)
  1. AMPHETAMINES [Suspect]
  2. METHADONE HCL [Suspect]
     Indication: DRUG WITHDRAWAL MAINTENANCE THERAPY
  3. HEROIN [Suspect]

REACTIONS (10)
  - ASPARTATE AMINOTRANSFERASE INCREASED [None]
  - DEPRESSION [None]
  - BIPOLAR DISORDER [None]
  - HEPATITIS FULMINANT [None]
  - MITRAL VALVE PROLAPSE [None]
  - SUICIDE ATTEMPT [None]
  - CHOLECYSTITIS [None]
  - MULTIPLE FRACTURES [None]
  - HYPERBILIRUBINAEMIA [None]
  - ALANINE AMINOTRANSFERASE INCREASED [None]
